FAERS Safety Report 7086211-8 (Version None)
Quarter: 2010Q4

REPORT INFORMATION
  Report Type: 
  Country: None (occurrence: None)
  Receive Date: 20101105
  Receipt Date: 20101018
  Transmission Date: 20110411
  Serious: Yes (Hospitalization, Other)
  Sender: FDA-Public Use
  Company Number: US-AMGEN-US378639

PATIENT

DRUGS (3)
  1. NPLATE [Suspect]
     Indication: IDIOPATHIC THROMBOCYTOPENIC PURPURA
     Dosage: 500 A?G, UNK
     Route: 058
     Dates: start: 20091022, end: 20091125
  2. NPLATE [Suspect]
     Dates: start: 20091022
  3. CORTICOSTEROIDS [Concomitant]
     Dosage: UNK
     Dates: start: 20090415

REACTIONS (3)
  - DRUG INEFFECTIVE [None]
  - GASTROINTESTINAL HAEMORRHAGE [None]
  - PLATELET COUNT DECREASED [None]
